FAERS Safety Report 9075896 (Version 1)
Quarter: 2013Q1

REPORT INFORMATION
  Report Type: Spontaneous
  Country: JP (occurrence: JP)
  Receive Date: 20130201
  Receipt Date: 20130201
  Transmission Date: 20140127
  Serious: Yes (Other)
  Sender: FDA-Public Use
  Company Number: JP-B.I. PHARMACEUTICALS,INC./RIDGEFIELD-2013-BI-02064NB

PATIENT
  Age: 88 Year
  Sex: Female
  Weight: 40 kg

DRUGS (9)
  1. PRADAXA [Suspect]
     Indication: ATRIAL FIBRILLATION
     Dosage: 110 MG
     Route: 048
  2. FOSAMAC 35MG [Concomitant]
     Route: 048
  3. CALONAL [Concomitant]
     Dosage: 200 MG
     Route: 048
  4. OMEPRAZOLE [Concomitant]
     Dosage: 10 MG
     Route: 048
  5. BROTIZOLAM [Concomitant]
     Dosage: 0.25 MG
     Route: 048
  6. SELARA [Concomitant]
     Dosage: 25 MG
     Route: 048
  7. ARTIST [Concomitant]
     Dosage: 7.5 MG
     Route: 048
  8. DIART [Concomitant]
     Dosage: 60 MG
     Route: 048
  9. HALFDIGOXIN [Concomitant]
     Dosage: 0.0625 MG
     Route: 048

REACTIONS (2)
  - Cerebral infarction [Unknown]
  - Drug effect incomplete [Unknown]
